FAERS Safety Report 16885985 (Version 1)
Quarter: 2019Q4

REPORT INFORMATION
  Report Type: Spontaneous
  Country: US (occurrence: US)
  Receive Date: 20191004
  Receipt Date: 20191004
  Transmission Date: 20200122
  Serious: Yes (Hospitalization)
  Sender: FDA-Public Use
  Company Number: None

PATIENT
  Age: 61 Year
  Sex: Female

DRUGS (10)
  1. POT CL MICRO TAB 20 MEQ [Concomitant]
  2. VITAMIN D3 POW [Concomitant]
  3. FUROSEMIDE SOL 800 MG [Concomitant]
  4. FOLIC ACID TAB 1 MG [Concomitant]
  5. WELLBUTRIN TAB XL 150 MG [Concomitant]
  6. TRAMADOL HCL TAB 50 MG [Concomitant]
  7. NEURONTIN TAB 800 MG [Concomitant]
  8. CYANOCOBALAM INJ 1000 MG [Concomitant]
  9. HUMIRA [Suspect]
     Active Substance: ADALIMUMAB
     Indication: RHEUMATOID ARTHRITIS
     Dosage: ?          OTHER FREQUENCY:EVERY 14 DAYS;?
     Route: 058
     Dates: start: 20150825
  10. MELOXICAM TAB 15 MG [Concomitant]

REACTIONS (2)
  - Staphylococcal infection [None]
  - Femur fracture [None]
